FAERS Safety Report 4351189-4 (Version None)
Quarter: 2004Q2

REPORT INFORMATION
  Report Type: 
  Country: None (occurrence: None)
  Receive Date: 20040428
  Receipt Date: 20030424
  Transmission Date: 20050107
  Serious: Yes (Other)
  Sender: FDA-Public Use
  Company Number: NSADSS2003020184

PATIENT
  Age: 35 Year
  Sex: Female
  Weight: 61.2356 kg

DRUGS (3)
  1. ULTRAM [Suspect]
     Indication: PAIN
     Dosage: 50 MG, ORAL
     Route: 048
  2. VICODIN [Concomitant]
  3. VALIUM [Concomitant]

REACTIONS (2)
  - ACCIDENT [None]
  - CIRCULATORY COLLAPSE [None]
